FAERS Safety Report 9925478 (Version 13)
Quarter: 2016Q1

REPORT INFORMATION
  Report Type: Report from Study
  Country: US (occurrence: US)
  Receive Date: 20140226
  Receipt Date: 20160107
  Transmission Date: 20160526
  Serious: Yes (Hospitalization, Other)
  Sender: FDA-Public Use
  Company Number: US-ALEXION-A201400640

PATIENT
  Age: 62 Year
  Sex: Male
  Weight: 115.65 kg

DRUGS (4)
  1. SOLIRIS [Suspect]
     Active Substance: ECULIZUMAB
     Indication: PAROXYSMAL NOCTURNAL HAEMOGLOBINURIA
     Dosage: 1200 MG EVERY 10 DAYS
     Route: 042
     Dates: start: 20091005
  2. OXYMETHOLONE [Concomitant]
     Active Substance: OXYMETHOLONE
     Indication: PRODUCT USED FOR UNKNOWN INDICATION
     Dosage: UNK QD
     Route: 048
     Dates: start: 20090601
  3. SOLIRIS [Suspect]
     Active Substance: ECULIZUMAB
     Dosage: 1200 MG, Q10D
     Route: 042
  4. SOLIRIS [Suspect]
     Active Substance: ECULIZUMAB
     Dosage: 1500 MG, UNK
     Route: 042

REACTIONS (21)
  - Haemoglobin abnormal [Unknown]
  - Blood count abnormal [Recovered/Resolved]
  - Inappropriate schedule of drug administration [Unknown]
  - Haemolysis [Not Recovered/Not Resolved]
  - Incorrect dose administered [Unknown]
  - Spinal compression fracture [Unknown]
  - Blood lactate dehydrogenase increased [Unknown]
  - Venoocclusive disease [Unknown]
  - Haemoglobin decreased [Unknown]
  - Transfusion [Unknown]
  - Haemoglobin abnormal [Unknown]
  - Gastrointestinal disorder [Unknown]
  - Nerve compression [Unknown]
  - Hepatic cirrhosis [Unknown]
  - Back pain [Unknown]
  - Red blood cell count decreased [Unknown]
  - Gastrointestinal haemorrhage [Not Recovered/Not Resolved]
  - Seasonal allergy [Recovering/Resolving]
  - Red blood cell count increased [Unknown]
  - Haemoglobin increased [Unknown]
  - Muscle spasms [Not Recovered/Not Resolved]

NARRATIVE: CASE EVENT DATE: 20091005
